FAERS Safety Report 5388816-9 (Version None)
Quarter: 2007Q3

REPORT INFORMATION
  Report Type: 
  Country: None (occurrence: None)
  Receive Date: 20070712
  Receipt Date: 20070629
  Transmission Date: 20080115
  Serious: Yes (Life-Threatening)
  Sender: FDA-Public Use
  Company Number: MC200700502

PATIENT
  Age: 61 Year
  Sex: Female
  Weight: 82 kg

DRUGS (6)
  1. ANGIOMAX [Suspect]
     Indication: PERCUTANEOUS CORONARY INTERVENTION
     Dosage: 61.5 MG + 140 MG, BOLUS, IV BOLUS
     Route: 040
     Dates: start: 20070622, end: 20070622
  2. ANGIOMAX [Suspect]
     Indication: PERCUTANEOUS CORONARY INTERVENTION
     Dosage: 61.5 MG + 140 MG, BOLUS, IV BOLUS
     Route: 040
     Dates: start: 20070622, end: 20070622
  3. FENTANYL [Concomitant]
  4. MIDAZOLAM HCL [Concomitant]
  5. LIDOCAINE [Concomitant]
  6. NITROGLYCERIN [Concomitant]

REACTIONS (7)
  - ARRHYTHMIA [None]
  - CARDIOGENIC SHOCK [None]
  - COAGULATION TIME ABNORMAL [None]
  - CORONARY ARTERY THROMBOSIS [None]
  - POST PROCEDURAL COMPLICATION [None]
  - SUPRAVENTRICULAR TACHYCARDIA [None]
  - VOMITING [None]
